FAERS Safety Report 4633832-5 (Version None)
Quarter: 2005Q2

REPORT INFORMATION
  Report Type: 
  Country: None (occurrence: None)
  Receive Date: 20050413
  Receipt Date: 20040721
  Transmission Date: 20051028
  Serious: Yes (Life-Threatening, Hospitalization)
  Sender: FDA-Public Use
  Company Number: FR-BOEHRINGER INGELHEIM PHARMACEUTICALS, INC.-2004-FF-00441FF

PATIENT
  Sex: Male

DRUGS (5)
  1. VIRAMUNE [Suspect]
     Indication: HIV INFECTION
     Route: 048
     Dates: start: 20040301, end: 20040316
  2. ORBENINE [Concomitant]
     Indication: INFECTION
     Route: 048
     Dates: start: 20040310, end: 20040315
  3. VALIUM [Concomitant]
     Route: 048
  4. COMBIVIR [Concomitant]
     Indication: HIV INFECTION
     Route: 048
     Dates: start: 19960201, end: 20040319
  5. DEPAKOTE [Concomitant]
     Route: 048
     Dates: start: 20040226, end: 20040319

REACTIONS (5)
  - ALCOHOL DETOXIFICATION [None]
  - DEPRESSION [None]
  - KERATITIS [None]
  - RHABDOMYOLYSIS [None]
  - TOXIC EPIDERMAL NECROLYSIS [None]
